FAERS Safety Report 6072341-6 (Version None)
Quarter: 2009Q1

REPORT INFORMATION
  Report Type: 
  Country: None (occurrence: None)
  Receive Date: 20090210
  Receipt Date: 20090202
  Transmission Date: 20090719
  Serious: Yes (Other)
  Sender: FDA-Public Use
  Company Number: PHHY2009FR01567

PATIENT
  Sex: Male
  Weight: 74 kg

DRUGS (5)
  1. EXELON [Suspect]
     Dosage: 4.6 MG, QD
     Route: 062
     Dates: start: 20081107, end: 20090120
  2. GLIMEPIRIDE [Concomitant]
     Route: 048
  3. LIPANTHYL [Concomitant]
     Route: 048
  4. LOSARTAN POTASSIUM AND HYDROCHLOROTHIAZIDE [Concomitant]
     Route: 048
  5. TAMSULOSIN HCL [Concomitant]
     Route: 048

REACTIONS (3)
  - APPLICATION SITE ERYTHEMA [None]
  - APPLICATION SITE IRRITATION [None]
  - APPLICATION SITE VESICLES [None]
